FAERS Safety Report 5681526-X (Version None)
Quarter: 2008Q1

REPORT INFORMATION
  Report Type: 
  Country: None (occurrence: None)
  Receive Date: 20080326
  Receipt Date: 20070209
  Transmission Date: 20080703
  Serious: No
  Sender: FDA-Public Use
  Company Number: US-BAYER-US-2007-004935

PATIENT
  Age: 40 Year
  Sex: Female

DRUGS (2)
  1. MIRENA [Suspect]
     Indication: ORAL CONTRACEPTION
     Route: 015
     Dates: start: 20050701
  2. NEXIUM /UNK/ [Concomitant]

REACTIONS (6)
  - AMENORRHOEA [None]
  - CRYING [None]
  - DEPRESSION [None]
  - MENOPAUSE [None]
  - MOOD SWINGS [None]
  - WEIGHT INCREASED [None]
